FAERS Safety Report 8413761-1 (Version None)
Quarter: 2012Q2

REPORT INFORMATION
  Report Type: 
  Country: None (occurrence: None)
  Receive Date: 20120605
  Receipt Date: 20120521
  Transmission Date: 20120825
  Serious: Yes (Other)
  Sender: FDA-Public Use
  Company Number: US-WATSON-2005A-00593

PATIENT
  Age: 10 Year
  Sex: Male

DRUGS (2)
  1. CEFTRIAXONE SODIUM [Suspect]
     Indication: PNEUMONIA
     Dosage: UNK
     Route: 042
  2. ALBUTEROL [Suspect]
     Dosage: 2.5 MG
     Route: 055

REACTIONS (3)
  - HAEMOLYSIS [None]
  - CARDIOGENIC SHOCK [None]
  - MYOCARDIAL ISCHAEMIA [None]
